FAERS Safety Report 4455793-4 (Version None)
Quarter: 2004Q3

REPORT INFORMATION
  Report Type: 
  Country: None (occurrence: None)
  Receive Date: 20040917
  Receipt Date: 20040906
  Transmission Date: 20050211
  Serious: No
  Sender: FDA-Public Use
  Company Number: 04P-087-0272628-00

PATIENT
  Age: 61 Year
  Sex: Male

DRUGS (6)
  1. BIAXIN [Suspect]
     Indication: GASTRIC ULCER
     Dosage: ONE HALF CARD, TWICE A DAY, PER ORAL
     Route: 048
     Dates: start: 20040825, end: 20040825
  2. BIAXIN [Suspect]
     Indication: HELICOBACTER INFECTION
     Dosage: ONE HALF CARD, TWICE A DAY, PER ORAL
     Route: 048
     Dates: start: 20040825, end: 20040825
  3. LANSOPRAZOLE [Suspect]
     Indication: GASTRIC ULCER
     Dosage: ONE HALF CARD, TWICE A DAY, PER ORAL
     Route: 048
     Dates: start: 20040825, end: 20040825
  4. LANSOPRAZOLE [Suspect]
     Indication: HELICOBACTER INFECTION
     Dosage: ONE HALF CARD, TWICE A DAY, PER ORAL
     Route: 048
     Dates: start: 20040825, end: 20040825
  5. AMOXICILLIN [Suspect]
     Indication: GASTRIC ULCER
     Dosage: ONE HALF CARD, TWICE A DAY, PER ORAL
     Route: 048
     Dates: start: 20040825, end: 20040825
  6. AMOXICILLIN [Suspect]
     Indication: HELICOBACTER INFECTION
     Dosage: ONE HALF CARD, TWICE A DAY, PER ORAL
     Route: 048
     Dates: start: 20040825, end: 20040825

REACTIONS (2)
  - FLUSHING [None]
  - GENERALISED OEDEMA [None]
